FAERS Safety Report 11391390 (Version 2)
Quarter: 2015Q3

REPORT INFORMATION
  Report Type: Spontaneous
  Country: SE (occurrence: SE)
  Receive Date: 20150818
  Receipt Date: 20150901
  Transmission Date: 20151125
  Serious: Yes (Hospitalization)
  Sender: FDA-Public Use
  Company Number: SE-NOVOPROD-437179

PATIENT
  Age: 28 Year
  Sex: Female
  Weight: 65 kg

DRUGS (25)
  1. TRESIBA FLEXTOUCH [Suspect]
     Active Substance: INSULIN DEGLUDEC
     Dosage: 22 IU, QD
     Route: 058
     Dates: start: 20150719
  2. NOVORAPID [Suspect]
     Active Substance: INSULIN ASPART
     Dosage: 4 - 6 IE BOLUS
     Route: 058
     Dates: start: 20150120
  3. NOVORAPID [Suspect]
     Active Substance: INSULIN ASPART
     Dosage: 4 IU (EVERY MEAL)
     Route: 058
  4. NOVORAPID [Suspect]
     Active Substance: INSULIN ASPART
     Indication: TYPE 1 DIABETES MELLITUS
     Dosage: 4 - 6 IU THRICE/DAY
     Route: 058
     Dates: start: 1999
  5. NOVORAPID [Suspect]
     Active Substance: INSULIN ASPART
     Dosage: 4 - 6 IE BOLUS
     Route: 058
     Dates: start: 20150203
  6. TROMBYL [Concomitant]
     Active Substance: ASPIRIN
     Dosage: UNK
     Dates: start: 20150120
  7. FRAGMIN [Concomitant]
     Active Substance: DALTEPARIN SODIUM
     Indication: THROMBOSIS PROPHYLAXIS
     Dosage: 5000 IE, QD
     Dates: start: 20150519
  8. FOLACIN                            /00024201/ [Concomitant]
     Active Substance: FOLIC ACID
     Dosage: UNK
     Dates: start: 20150120
  9. LERGIGAN                           /00033002/ [Concomitant]
     Active Substance: PROMETHAZINE\PROMETHAZINE HYDROCHLORIDE
     Indication: VOMITING IN PREGNANCY
     Dosage: 1 TAB, PRN
     Route: 048
     Dates: start: 20141222, end: 2015
  10. FURADANTIN [Concomitant]
     Active Substance: NITROFURANTOIN
     Dosage: UNK
     Dates: start: 20150120
  11. FRAGMIN [Concomitant]
     Active Substance: DALTEPARIN SODIUM
     Dosage: 5000 IE, QD
     Dates: start: 20150701
  12. TRESIBA FLEXTOUCH [Suspect]
     Active Substance: INSULIN DEGLUDEC
     Dosage: UNK
  13. NOVORAPID [Suspect]
     Active Substance: INSULIN ASPART
     Dosage: 10 IE BOLUS
     Route: 058
     Dates: start: 20150113
  14. FRAGMIN [Concomitant]
     Active Substance: DALTEPARIN SODIUM
     Dosage: 2500 E
     Dates: start: 20150630
  15. TRESIBA FLEXTOUCH [Suspect]
     Active Substance: INSULIN DEGLUDEC
     Indication: TYPE 1 DIABETES MELLITUS
     Dosage: 23 IU, QD
     Route: 058
     Dates: start: 201401
  16. TRESIBA FLEXTOUCH [Suspect]
     Active Substance: INSULIN DEGLUDEC
     Dosage: 22 IE, QD (EVENING)
     Route: 058
     Dates: start: 20150113
  17. TRESIBA FLEXTOUCH [Suspect]
     Active Substance: INSULIN DEGLUDEC
     Dosage: 23 IE, QD
     Route: 058
     Dates: start: 20150120
  18. TRESIBA FLEXTOUCH [Suspect]
     Active Substance: INSULIN DEGLUDEC
     Dosage: UNK
  19. VITAMIN B12 + FOLIC ACID [Concomitant]
     Dosage: UNK
     Dates: start: 20150617
  20. TRANDATE [Concomitant]
     Active Substance: LABETALOL HYDROCHLORIDE
     Indication: GESTATIONAL HYPERTENSION
     Dosage: UNK
     Dates: start: 20150630
  21. TRANDATE [Concomitant]
     Active Substance: LABETALOL HYDROCHLORIDE
     Dosage: 100 MG, TID
     Dates: start: 20150719
  22. TRESIBA FLEXTOUCH [Suspect]
     Active Substance: INSULIN DEGLUDEC
     Dosage: 24 IE, QD (EVENING)
     Route: 058
     Dates: start: 20150203
  23. NOVORAPID [Suspect]
     Active Substance: INSULIN ASPART
     Dosage: 6 - 8 IE BOLUS
     Route: 058
     Dates: start: 20150331
  24. LEVAXIN [Concomitant]
     Active Substance: LEVOTHYROXINE SODIUM
     Dosage: 75 ?G, QD
     Route: 048
     Dates: start: 20150512
  25. FURIX [Concomitant]
     Active Substance: FUROSEMIDE
     Indication: GESTATIONAL HYPERTENSION
     Dosage: 20 MG, QD
     Dates: start: 20150630, end: 20150702

REACTIONS (2)
  - Exposure during pregnancy [Recovered/Resolved]
  - Nephrotic syndrome [Unknown]

NARRATIVE: CASE EVENT DATE: 20150623
